FAERS Safety Report 12936497 (Version 2)
Quarter: 2016Q4

REPORT INFORMATION
  Report Type: Report from Study
  Country: AU (occurrence: AU)
  Receive Date: 20161114
  Receipt Date: 20161115
  Transmission Date: 20170207
  Serious: Yes (Death)
  Sender: FDA-Public Use
  Company Number: AU-ASTRAZENECA-2015SE04393

PATIENT
  Age: 913 Month
  Sex: Male

DRUGS (2)
  1. COSUDEX [Suspect]
     Active Substance: BICALUTAMIDE
     Route: 048
     Dates: end: 2014
  2. ZOLADEX [Suspect]
     Active Substance: GOSERELIN ACETATE
     Indication: PROSTATE CANCER
     Route: 058
     Dates: start: 20130626

REACTIONS (3)
  - Mental impairment [Recovering/Resolving]
  - Death [Fatal]
  - Weight increased [Recovering/Resolving]

NARRATIVE: CASE EVENT DATE: 201512
